FAERS Safety Report 9511315 (Version 1)
Quarter: 2013Q3

REPORT INFORMATION
  Report Type: Spontaneous
  Country: BR (occurrence: BR)
  Receive Date: 20130910
  Receipt Date: 20130910
  Transmission Date: 20140515
  Serious: Yes (Other)
  Sender: FDA-Public Use
  Company Number: BR-JNJFOC-20130900044

PATIENT
  Age: 19 Year
  Sex: Male
  Weight: 26 kg

DRUGS (5)
  1. HALDOL [Suspect]
     Indication: RESTLESSNESS
     Route: 065
  2. RIVOTRIL [Concomitant]
     Indication: RESTLESSNESS
     Route: 065
  3. BACLOFEN [Concomitant]
     Indication: MUSCLE RELAXANT THERAPY
     Route: 065
  4. OMEPRAZOLE [Concomitant]
     Indication: GASTROOESOPHAGEAL REFLUX DISEASE
     Route: 065
  5. MOTILIUM [Concomitant]
     Indication: GASTROOESOPHAGEAL REFLUX DISEASE
     Route: 065

REACTIONS (5)
  - Dyspnoea [Unknown]
  - Salivary hypersecretion [Unknown]
  - Hyperhidrosis [Unknown]
  - Restlessness [Unknown]
  - Dyskinesia [Unknown]
